FAERS Safety Report 4278584-6 (Version None)
Quarter: 2004Q1

REPORT INFORMATION
  Report Type: 
  Country: None (occurrence: None)
  Receive Date: 20040122
  Receipt Date: 20040114
  Transmission Date: 20041129
  Serious: Yes (Hospitalization)
  Sender: FDA-Public Use
  Company Number: 2004UW00669

PATIENT
  Age: 81 Year
  Sex: Female

DRUGS (5)
  1. PLENDIL [Suspect]
     Indication: HYPERTENSION
     Dosage: 20 MG QD PO
     Route: 048
     Dates: start: 20031101
  2. LASIX [Concomitant]
  3. ALDACTONE [Concomitant]
  4. COREG [Concomitant]
  5. BENICAR [Concomitant]

REACTIONS (2)
  - CHEST PAIN [None]
  - OVERDOSE [None]
